FAERS Safety Report 8539654-7 (Version None)
Quarter: 2012Q3

REPORT INFORMATION
  Report Type: 
  Country: None (occurrence: None)
  Receive Date: 20120726
  Receipt Date: 20110720
  Transmission Date: 20120928
  Serious: No
  Sender: FDA-Public Use
  Company Number: US-ASTRAZENECA-2008UW22368

PATIENT
  Age: 36 Year
  Sex: Female
  Weight: 136.1 kg

DRUGS (15)
  1. LIPITOR [Concomitant]
     Dates: start: 20061229
  2. SEROQUEL [Suspect]
     Indication: AFFECTIVE DISORDER
     Dosage: 200-300 MG
     Route: 048
     Dates: start: 20050126
  3. ZOLOFT [Concomitant]
     Dosage: 100-150 MG
     Dates: start: 20050126
  4. SEROQUEL [Suspect]
     Indication: SLEEP DISORDER
     Dosage: 200-300 MG
     Route: 048
     Dates: start: 20050126
  5. WELLBUTRIN XL [Concomitant]
     Dates: start: 20050126
  6. PROZAC [Concomitant]
     Dates: start: 19980101
  7. NAPROXEN [Concomitant]
     Dates: start: 20061202
  8. SEROQUEL [Suspect]
     Indication: BIPOLAR DISORDER
     Dosage: 200-300 MG
     Route: 048
     Dates: start: 20050126
  9. SEROQUEL [Suspect]
     Dosage: 50-300MG
     Route: 048
     Dates: start: 20060101
  10. SEROQUEL [Suspect]
     Dosage: 50-300MG
     Route: 048
     Dates: start: 20060101
  11. SEROQUEL [Suspect]
     Dosage: 50-300MG
     Route: 048
     Dates: start: 20060101
  12. ABILIFY [Concomitant]
     Dosage: 15 TO 30 MG
     Dates: start: 20050126
  13. LEVOTHYROXINE SODIUM [Concomitant]
     Dosage: 200-300 MCG
     Dates: start: 20050127
  14. METFORMIN HCL [Concomitant]
     Dates: start: 20061120
  15. SINGULAIR [Concomitant]
     Dates: start: 20061216

REACTIONS (5)
  - DIABETES MELLITUS [None]
  - HYPERLIPIDAEMIA [None]
  - MENISCUS LESION [None]
  - EXOSTOSIS [None]
  - BLOOD CHOLESTEROL INCREASED [None]
